FAERS Safety Report 14581752 (Version 1)
Quarter: 2018Q1

REPORT INFORMATION
  Report Type: Spontaneous
  Country: GB (occurrence: GB)
  Receive Date: 20180228
  Receipt Date: 20180228
  Transmission Date: 20180509
  Serious: Yes (Other)
  Sender: FDA-Public Use
  Company Number: GB-AUROBINDO-AUR-APL-2018-009658

PATIENT
  Sex: Female

DRUGS (3)
  1. MIRTAZAPINE ACTAVIS [Suspect]
     Active Substance: MIRTAZAPINE
     Indication: DEPRESSION
     Dosage: 30 MG, UNK
     Route: 048
     Dates: start: 20180115, end: 20180115
  2. MIRTAZAPINE ORODISPERSABLE TABLET [Suspect]
     Active Substance: MIRTAZAPINE
     Indication: DEPRESSION
     Dosage: 15 MG, DAILY
     Route: 048
     Dates: start: 20180108, end: 20180115
  3. PAROXETINE HYDROCHLORIDE. [Concomitant]
     Active Substance: PAROXETINE HYDROCHLORIDE
     Indication: ANXIETY
     Dosage: 30 MG. DOSE REDUCED TO 20MG FOR 3 DAYS, 4TH DAY DOSE REDUCED TO 10MG FOR A 3 DAYS THEN STOPPED ()
     Dates: start: 2002, end: 20180111

REACTIONS (7)
  - Somnolence [Recovered/Resolved]
  - Fatigue [Recovered/Resolved]
  - Violence-related symptom [Unknown]
  - Irritability [Recovering/Resolving]
  - Mental disorder [Unknown]
  - Anger [Recovering/Resolving]
  - Suicidal ideation [Unknown]

NARRATIVE: CASE EVENT DATE: 20180108
